FAERS Safety Report 25084701 (Version 2)
Quarter: 2025Q2

REPORT INFORMATION
  Report Type: Spontaneous
  Country: FI (occurrence: FI)
  Receive Date: 20250317
  Receipt Date: 20250515
  Transmission Date: 20250717
  Serious: Yes (Disabling, Other)
  Sender: PFIZER
  Company Number: FI-PFIZER INC-202500056481

PATIENT
  Age: 74 Year
  Sex: Female
  Weight: 55 kg

DRUGS (8)
  1. LORAZEPAM [Suspect]
     Active Substance: LORAZEPAM
     Indication: Muscle spasms
     Dosage: 1 MG, 1X/DAY
     Route: 048
     Dates: start: 20221031
  2. ROSUVASTATIN [Concomitant]
     Active Substance: ROSUVASTATIN
     Indication: Blood cholesterol increased
     Dosage: 5 MG, 1X/DAY
  3. FOLVITE [Concomitant]
     Active Substance: FOLIC ACID
     Indication: Folate deficiency
  4. ACETAMINOPHEN [Concomitant]
     Active Substance: ACETAMINOPHEN
     Indication: Osteoarthritis
     Dosage: 1000, 3X/DAY
  5. ORISANTIN [ACETYLSALICYLIC ACID;DIPYRIDAMOLE] [Concomitant]
     Indication: Anticoagulant therapy
     Dosage: 200 MG/25 MG X 1 IN THE MORNING
  6. ORISANTIN [ACETYLSALICYLIC ACID;DIPYRIDAMOLE] [Concomitant]
     Indication: Transient ischaemic attack
  7. TAFLUPROST [Concomitant]
     Active Substance: TAFLUPROST
     Indication: Glaucoma
     Dosage: 1 DROP IN THE LEFT EYE AT NIGHT
  8. SIMBRINZA [Concomitant]
     Active Substance: BRIMONIDINE TARTRATE\BRINZOLAMIDE
     Indication: Glaucoma

REACTIONS (4)
  - Glaucoma [Not Recovered/Not Resolved]
  - Epiretinal membrane [Not Recovered/Not Resolved]
  - Strabismus [Not Recovered/Not Resolved]
  - Off label use [Unknown]

NARRATIVE: CASE EVENT DATE: 20240919
